FAERS Safety Report 9372146 (Version 1)
Quarter: 2013Q2

REPORT INFORMATION
  Report Type: Spontaneous
  Country: US (occurrence: None)
  Receive Date: 20130619
  Receipt Date: 20130619
  Transmission Date: 20140414
  Serious: Yes (Hospitalization)
  Sender: FDA-Public Use
  Company Number: US-145438

PATIENT
  Age: 10 Year
  Sex: Male
  Weight: 50.4 kg

DRUGS (3)
  1. WINRHO SDF LIQUID [Suspect]
     Indication: AUTOIMMUNE THROMBOCYTOPENIA
     Dosage: TOTAL INTRAVENOUS (NOT OTHERWISE SPECIFIED)
     Route: 042
     Dates: start: 20130430, end: 20130430
  2. TYLENOL [Concomitant]
  3. BENADRYL [Concomitant]

REACTIONS (2)
  - Haemoglobinuria [None]
  - Anaemia [None]
